FAERS Safety Report 9444764 (Version 1)
Quarter: 2013Q3

REPORT INFORMATION
  Report Type: Spontaneous
  Country: US (occurrence: US)
  Receive Date: 20130807
  Receipt Date: 20130807
  Transmission Date: 20140515
  Serious: Yes (Death)
  Sender: FDA-Public Use
  Company Number: US-ASTELLAS-2013US008219

PATIENT
  Age: 39 Year
  Sex: Male

DRUGS (1)
  1. PROGRAF [Suspect]
     Indication: ACUTE GRAFT VERSUS HOST DISEASE
     Dosage: 2 MG, UID/QD
     Route: 048
     Dates: end: 20130728

REACTIONS (2)
  - Off label use [Unknown]
  - Death [Fatal]
